FAERS Safety Report 16607984 (Version 1)
Quarter: 2019Q3

REPORT INFORMATION
  Report Type: Spontaneous
  Country: US (occurrence: US)
  Receive Date: 20190722
  Receipt Date: 20190722
  Transmission Date: 20191004
  Serious: Yes (Death, Hospitalization)
  Sender: FDA-Public Use
  Company Number: US-SAMSUNG BIOEPIS-SB-2019-19044

PATIENT
  Age: 57 Year
  Sex: Male

DRUGS (2)
  1. ADALIMUMAB [Suspect]
     Active Substance: ADALIMUMAB
     Indication: CROHN^S DISEASE
     Dosage: UNKNOWN
     Route: 065
  2. INFLIXIMAB [Suspect]
     Active Substance: INFLIXIMAB
     Indication: CROHN^S DISEASE
     Dosage: UNKNOWN
     Route: 065

REACTIONS (10)
  - Hepatic enzyme increased [Recovered/Resolved]
  - Multiple organ dysfunction syndrome [Unknown]
  - Blood fibrinogen decreased [Unknown]
  - Renal failure [Unknown]
  - Gastrointestinal haemorrhage [Unknown]
  - Shock haemorrhagic [Fatal]
  - Pancytopenia [Unknown]
  - Hyperbilirubinaemia [Unknown]
  - Haemophagocytic lymphohistiocytosis [Recovering/Resolving]
  - Serum ferritin increased [Recovered/Resolved]
